FAERS Safety Report 20856884 (Version 1)
Quarter: 2022Q2

REPORT INFORMATION
  Report Type: Spontaneous
  Country: US (occurrence: US)
  Receive Date: 20220520
  Receipt Date: 20220520
  Transmission Date: 20220721
  Serious: No
  Sender: FDA-Public Use
  Company Number: US-SA-SAC20220517000155

PATIENT
  Age: 66 Year
  Sex: Male

DRUGS (18)
  1. DUPIXENT [Suspect]
     Active Substance: DUPILUMAB
     Indication: Chronic obstructive pulmonary disease
     Dosage: 1 DF, QOW
     Route: 058
     Dates: start: 20210427, end: 20220512
  2. ZITHROMAX [Concomitant]
     Active Substance: AZITHROMYCIN DIHYDRATE
  3. MEDROL [Concomitant]
     Active Substance: METHYLPREDNISOLONE
  4. LYRICA [Concomitant]
     Active Substance: PREGABALIN
  5. PERCOCET [Concomitant]
     Active Substance: ACETAMINOPHEN\OXYCODONE HYDROCHLORIDE
  6. OMEPRAZOLE [Concomitant]
     Active Substance: OMEPRAZOLE
  7. NARCAN [Concomitant]
     Active Substance: NALOXONE HYDROCHLORIDE
  8. MUCINEX [Concomitant]
     Active Substance: GUAIFENESIN
  9. METHADONE [Concomitant]
     Active Substance: METHADONE HYDROCHLORIDE
  10. LISINOPRIL [Concomitant]
     Active Substance: LISINOPRIL
  11. LEVOFLOXACIN [Concomitant]
     Active Substance: LEVOFLOXACIN
  12. DILAUDID [Concomitant]
     Active Substance: HYDROMORPHONE HYDROCHLORIDE
  13. GABAPENTIN [Concomitant]
     Active Substance: GABAPENTIN
  14. DULOXETINE [Concomitant]
     Active Substance: DULOXETINE
  15. FENTANYL [Concomitant]
     Active Substance: FENTANYL
  16. LASIX [Concomitant]
     Active Substance: FUROSEMIDE
  17. FASENRA [Concomitant]
     Active Substance: BENRALIZUMAB
  18. KLOR-CON [Concomitant]
     Active Substance: POTASSIUM CHLORIDE

REACTIONS (2)
  - Drug ineffective [Unknown]
  - Product use in unapproved indication [Unknown]
